FAERS Safety Report 9807068 (Version 1)
Quarter: 2014Q1

REPORT INFORMATION
  Report Type: Spontaneous
  Country: US (occurrence: US)
  Receive Date: 20140110
  Receipt Date: 20140110
  Transmission Date: 20141002
  Serious: Yes (Hospitalization)
  Sender: FDA-Public Use
  Company Number: US-ROCHE-1330495

PATIENT
  Sex: Male

DRUGS (1)
  1. TNKASE [Suspect]
     Indication: DEEP VEIN THROMBOSIS
     Route: 065
     Dates: start: 20131119, end: 20131119

REACTIONS (2)
  - Blood fibrinogen decreased [Unknown]
  - Product quality issue [Unknown]
